FAERS Safety Report 9524665 (Version 1)
Quarter: 2013Q3

REPORT INFORMATION
  Report Type: Spontaneous
  Country: US (occurrence: US)
  Receive Date: 20130916
  Receipt Date: 20130916
  Transmission Date: 20140515
  Serious: Yes (Other)
  Sender: FDA-Public Use
  Company Number: US-PFIZER INC-2013264311

PATIENT
  Age: 58 Year
  Sex: Male

DRUGS (4)
  1. GABAPENTIN [Suspect]
     Indication: PAIN
     Dosage: UNK
  2. MOTRIN [Suspect]
     Indication: PAIN
     Dosage: UNK
  3. TRAMADOL HCL [Suspect]
     Indication: PAIN
     Dosage: UNK
  4. TYLENOL [Suspect]
     Indication: PAIN
     Dosage: UNK

REACTIONS (8)
  - Pain [Unknown]
  - Activities of daily living impaired [Unknown]
  - Myalgia [Unknown]
  - Influenza like illness [Unknown]
  - Tendon pain [Unknown]
  - Ligament pain [Unknown]
  - Drug ineffective [Unknown]
  - Drug effect incomplete [Unknown]
